FAERS Safety Report 6583785-8 (Version None)
Quarter: 2010Q1

REPORT INFORMATION
  Report Type: 
  Country: None (occurrence: None)
  Receive Date: 20100213
  Receipt Date: 20100213
  Transmission Date: 20100710
  Serious: No
  Sender: FDA-Public Use
  Company Number: None

PATIENT
  Sex: Male

DRUGS (1)
  1. AMICAR [Suspect]
     Indication: HAEMOPHILIA
     Dosage: 12 ML EVERY 6 HRS PO
     Route: 048
     Dates: start: 20091201, end: 20091231

REACTIONS (1)
  - DEATH [None]
